FAERS Safety Report 8548482-8 (Version None)
Quarter: 2012Q3

REPORT INFORMATION
  Report Type: 
  Country: None (occurrence: None)
  Receive Date: 20120730
  Receipt Date: 20120724
  Transmission Date: 20120928
  Serious: Yes (Death, Other)
  Sender: FDA-Public Use
  Company Number: US-JNJFOC-20120712248

PATIENT

DRUGS (10)
  1. DOXORUBICIN HYDROCHLORIDE [Suspect]
     Indication: B-CELL LYMPHOMA
     Dosage: ADMINISTERED OVER 3 TO 5 MINUTES
     Route: 042
  2. PREDNISONE [Concomitant]
     Indication: NAUSEA
     Dosage: DAY 1-5
     Route: 048
  3. BORTEZOMIB [Suspect]
     Indication: B-CELL LYMPHOMA
     Dosage: ON DAY 1 AND REPEATED ON DAY 8 OF EACH CYCLE
     Route: 042
  4. RITUXIMAB [Suspect]
     Indication: B-CELL LYMPHOMA
     Dosage: ON DAY 1
     Route: 065
  5. CYCLOPHOSPHAMIDE [Suspect]
     Indication: B-CELL LYMPHOMA
     Dosage: ON DAY 1
     Route: 042
  6. PREDNISONE [Suspect]
     Indication: B-CELL LYMPHOMA
     Dosage: DAY 1-5
     Route: 048
  7. VINCRISTINE [Suspect]
     Indication: B-CELL LYMPHOMA
     Dosage: DAY 1-5, CAPPED 1.5 MG
     Route: 048
  8. ONDANSETRON [Concomitant]
     Indication: NAUSEA
     Route: 042
  9. ACETAMINOPHEN [Concomitant]
     Indication: HYPERSENSITIVITY
     Route: 048
  10. DIPHENHYDRAMINE HCL [Concomitant]
     Indication: HYPERSENSITIVITY
     Route: 048

REACTIONS (3)
  - B-CELL LYMPHOMA [None]
  - DISEASE PROGRESSION [None]
  - BURKITT'S LYMPHOMA [None]
